FAERS Safety Report 4893457-3 (Version None)
Quarter: 2006Q1

REPORT INFORMATION
  Report Type: 
  Country: None (occurrence: None)
  Receive Date: 20060124
  Receipt Date: 20060111
  Transmission Date: 20060701
  Serious: Yes (Hospitalization, Other)
  Sender: FDA-Public Use
  Company Number: 2005147948

PATIENT
  Age: 83 Year
  Sex: Female
  Weight: 69.4003 kg

DRUGS (4)
  1. NEURONTIN [Suspect]
     Indication: TREMOR
     Dosage: 300 MG (100 MG, 3 IN 1 D), ORAL
     Route: 048
  2. WARFARIN SODIUM [Suspect]
     Indication: ILL-DEFINED DISORDER
     Dates: end: 20030101
  3. AMIODARONE HCL [Concomitant]
  4. LEVOTHYROXINE SODIUM [Concomitant]

REACTIONS (14)
  - ABASIA [None]
  - ACCIDENT [None]
  - AGNOSIA [None]
  - BODY HEIGHT DECREASED [None]
  - CEREBRAL HAEMORRHAGE [None]
  - CEREBROVASCULAR ACCIDENT [None]
  - CONVULSION [None]
  - FALL [None]
  - HEAD INJURY [None]
  - HEMIPLEGIA [None]
  - HYPOAESTHESIA [None]
  - POSTURE ABNORMAL [None]
  - SPEECH DISORDER [None]
  - TRANSIENT ISCHAEMIC ATTACK [None]
